FAERS Safety Report 4885364-7 (Version None)
Quarter: 2005Q4

REPORT INFORMATION
  Report Type: 
  Country: None (occurrence: None)
  Receive Date: 20051222
  Receipt Date: 20050317
  Transmission Date: 20060501
  Serious: Yes (Hospitalization)
  Sender: FDA-Public Use
  Company Number: 398924

PATIENT
  Age: 75 Year
  Sex: Male

DRUGS (3)
  1. TICLID [Suspect]
     Dosage: ORAL
     Route: 048
  2. COUMADIN [Suspect]
     Dosage: ORAL
     Route: 048
  3. PLAVIX [Suspect]
     Dosage: ORAL
     Route: 048

REACTIONS (3)
  - PLATELET COUNT DECREASED [None]
  - RASH GENERALISED [None]
  - THROMBOCYTOPENIA [None]
